FAERS Safety Report 15315919 (Version 2)
Quarter: 2018Q4

REPORT INFORMATION
  Report Type: Report from Study
  Country: US (occurrence: US)
  Receive Date: 20180824
  Receipt Date: 20181010
  Transmission Date: 20190204
  Serious: Yes (Hospitalization)
  Sender: FDA-Public Use
  Company Number: US-SHIRE-US201832629

PATIENT
  Age: 67 Year
  Sex: Female
  Weight: 48.73 kg

DRUGS (1)
  1. GATTEX [Suspect]
     Active Substance: TEDUGLUTIDE\WATER
     Indication: SHORT-BOWEL SYNDROME
     Dosage: 3.15 MG, 1X/DAY:QD
     Route: 058
     Dates: start: 20180316

REACTIONS (2)
  - Fistula [Unknown]
  - Dehydration [Unknown]

NARRATIVE: CASE EVENT DATE: 20180820
